FAERS Safety Report 16991335 (Version 2)
Quarter: 2019Q4

REPORT INFORMATION
  Report Type: Spontaneous
  Country: US (occurrence: US)
  Receive Date: 20191104
  Receipt Date: 20191113
  Transmission Date: 20200122
  Serious: No
  Sender: FDA-Public Use
  Company Number: US-BAUSCH-BL-2019-059822

PATIENT

DRUGS (2)
  1. PLENVU [Suspect]
     Active Substance: ASCORBIC ACID\POLYETHYLENE GLYCOL 3350\POTASSIUM CHLORIDE\SODIUM ASCORBATE\SODIUM CHLORIDE\SODIUM SULFATE
     Indication: BOWEL PREPARATION
     Dosage: FIRST DOSE AT 4 AM, SIPPED A BIT EVERY 5 MINS AND LATER SIPPED SLOWLY
     Route: 048
  2. PLENVU [Suspect]
     Active Substance: ASCORBIC ACID\POLYETHYLENE GLYCOL 3350\POTASSIUM CHLORIDE\SODIUM ASCORBATE\SODIUM CHLORIDE\SODIUM SULFATE
     Dosage: SECOND DOSE AT 7 AM, LEFT BIGGER GAPS TAKING IT OVER 1.5 HRS
     Route: 048

REACTIONS (3)
  - Nausea [Unknown]
  - Feeling abnormal [Unknown]
  - Product taste abnormal [Unknown]
